FAERS Safety Report 4427039-4 (Version None)
Quarter: 2004Q3

REPORT INFORMATION
  Report Type: 
  Country: None (occurrence: None)
  Receive Date: 20040811
  Receipt Date: 20040804
  Transmission Date: 20050211
  Serious: Yes (Hospitalization, Other)
  Sender: FDA-Public Use
  Company Number: 2004224713US

PATIENT
  Age: 10 Year
  Sex: Female
  Weight: 64.1 kg

DRUGS (1)
  1. GENOTROPIN [Suspect]
     Indication: PRADER-WILLI SYNDROME
     Dosage: 2.2 MG, QD, SUBCUTANEOUS
     Route: 058
     Dates: start: 20031201

REACTIONS (2)
  - SLEEP APNOEA SYNDROME [None]
  - TONSILLECTOMY [None]
